FAERS Safety Report 6566982-7 (Version None)
Quarter: 2010Q1

REPORT INFORMATION
  Report Type: 
  Country: None (occurrence: None)
  Receive Date: 20100202
  Receipt Date: 20100119
  Transmission Date: 20100710
  Serious: Yes (Hospitalization)
  Sender: FDA-Public Use
  Company Number: AU-MERCK-0904USA02986

PATIENT
  Age: 51 Year
  Sex: Male

DRUGS (5)
  1. JANUVIA [Suspect]
     Indication: DIABETES MELLITUS
     Route: 048
     Dates: start: 20090402, end: 20090409
  2. KARVEA [Concomitant]
     Route: 065
  3. ZOCOR [Concomitant]
     Route: 048
  4. DIAMICRON MR [Concomitant]
     Route: 065
  5. COVERSYL (PERINDOPRIL ARGININE) [Concomitant]
     Route: 065

REACTIONS (5)
  - BLINDNESS TRANSIENT [None]
  - HYPERCALCAEMIA [None]
  - PARATHYROID TUMOUR BENIGN [None]
  - TRANSIENT ISCHAEMIC ATTACK [None]
  - VISION BLURRED [None]
